FAERS Safety Report 4774823-3 (Version None)
Quarter: 2005Q3

REPORT INFORMATION
  Report Type: 
  Country: None (occurrence: None)
  Receive Date: 20050919
  Receipt Date: 20050907
  Transmission Date: 20060218
  Serious: Yes (Other)
  Sender: FDA-Public Use
  Company Number: 2005125102

PATIENT
  Sex: 0

DRUGS (2)
  1. FRAGMIN [Suspect]
     Indication: ILL-DEFINED DISORDER
     Dosage: INTRAVENOUS
     Route: 042
  2. FUTHAN (NAFAMOSTAT MESILATE) [Concomitant]

REACTIONS (1)
  - HAEMORRHAGE [None]
